FAERS Safety Report 10268562 (Version 1)
Quarter: 2014Q2

REPORT INFORMATION
  Report Type: Spontaneous
  Country: US (occurrence: None)
  Receive Date: 20140627
  Receipt Date: 20140627
  Transmission Date: 20141212
  Serious: Yes (Hospitalization, Disabling)
  Sender: FDA-Public Use
  Company Number: None

PATIENT
  Age: 32 Year
  Sex: Female
  Weight: 81.65 kg

DRUGS (2)
  1. BENZOYL PEROXIDE [Suspect]
     Indication: ACNE
  2. BENZOYL PEROXIDE [Suspect]
     Indication: SKIN DISORDER

REACTIONS (4)
  - Hypersensitivity [None]
  - Cardiac disorder [None]
  - Electrocardiogram T wave inversion [None]
  - Product quality issue [None]
